FAERS Safety Report 15225975 (Version 1)
Quarter: 2018Q3

REPORT INFORMATION
  Report Type: Spontaneous
  Country: US (occurrence: US)
  Receive Date: 20180801
  Receipt Date: 20180801
  Transmission Date: 20181010
  Serious: Yes (Other)
  Sender: FDA-Public Use
  Company Number: US-ZYDUS-020998

PATIENT
  Age: 71 Year
  Sex: Female

DRUGS (3)
  1. HYDROXYCHLOROQUINE [Suspect]
     Active Substance: HYDROXYCHLOROQUINE
     Indication: RHEUMATOID ARTHRITIS
     Route: 065
  2. INFLIXIMAB [Concomitant]
     Active Substance: INFLIXIMAB
     Indication: PRODUCT USED FOR UNKNOWN INDICATION
     Route: 065
  3. METHOTREXATE. [Suspect]
     Active Substance: METHOTREXATE
     Indication: RHEUMATOID ARTHRITIS
     Route: 065

REACTIONS (18)
  - Lactic acidosis [Recovered/Resolved]
  - Blood fibrinogen decreased [Recovered/Resolved]
  - Diarrhoea [Recovered/Resolved]
  - Hepatic steatosis [Recovered/Resolved]
  - Mesenteric artery stenosis [Recovered/Resolved]
  - Histiocytosis haematophagic [Recovered/Resolved]
  - Hypoglycaemia [Recovered/Resolved]
  - Cytopenia [Recovered/Resolved]
  - Anaemia [Recovered/Resolved]
  - Thrombocytopenia [Recovered/Resolved]
  - Transaminases increased [Recovered/Resolved]
  - Acute kidney injury [Recovered/Resolved]
  - Hepatic function abnormal [Recovered/Resolved]
  - Disseminated intravascular coagulation [Recovered/Resolved]
  - Serum ferritin increased [Recovered/Resolved]
  - Pyrexia [Recovered/Resolved]
  - Hyperbilirubinaemia [Recovered/Resolved]
  - Arteriosclerosis [Recovered/Resolved]
